FAERS Safety Report 8362871-6 (Version None)
Quarter: 2012Q2

REPORT INFORMATION
  Report Type: 
  Country: None (occurrence: None)
  Receive Date: 20120511
  Receipt Date: 20120511
  Transmission Date: 20120825
  Serious: Yes (Life-Threatening, Hospitalization, Disabling)
  Sender: FDA-Public Use
  Company Number: None

PATIENT
  Age: 48 Year
  Sex: Female
  Weight: 61.2356 kg

DRUGS (2)
  1. ADDERALL 30 [Suspect]
  2. ADDERALL XR 30 [Suspect]

REACTIONS (2)
  - HAEMORRHAGE [None]
  - COUNTERFEIT DRUG ADMINISTERED [None]
